FAERS Safety Report 4532786-X (Version None)
Quarter: 2004Q4

REPORT INFORMATION
  Report Type: 
  Country: None (occurrence: None)
  Receive Date: 20041206
  Receipt Date: 20040930
  Transmission Date: 20050328
  Serious: No
  Sender: FDA-Public Use
  Company Number: USA040979744

PATIENT
  Age: 74 Year
  Sex: Female

DRUGS (6)
  1. CYMBALTA [Suspect]
     Dosage: 30 MG/1 DAY
     Dates: start: 20040924, end: 20040925
  2. HYDROCHLOROTHIAZIDE [Concomitant]
  3. PRINIVIL [Concomitant]
  4. LORTAB [Concomitant]
  5. CALCIUM [Concomitant]
  6. TRICOR [Concomitant]

REACTIONS (6)
  - ANOREXIA [None]
  - ASTHENIA [None]
  - DIARRHOEA [None]
  - MALAISE [None]
  - NAUSEA [None]
  - TREMOR [None]
